FAERS Safety Report 5249042-7 (Version None)
Quarter: 2007Q1

REPORT INFORMATION
  Report Type: 
  Country: None (occurrence: None)
  Receive Date: 20070228
  Receipt Date: 20060613
  Transmission Date: 20070707
  Serious: No
  Sender: FDA-Public Use
  Company Number: US-GLAXOSMITHKLINE-A0608855A

PATIENT
  Age: 30 Year
  Sex: Female

DRUGS (2)
  1. VALTREX [Suspect]
     Route: 048
  2. LEXAPRO [Concomitant]

REACTIONS (3)
  - AGITATION [None]
  - ANXIETY [None]
  - STOMACH DISCOMFORT [None]
